FAERS Safety Report 7801919-1 (Version None)
Quarter: 2011Q4

REPORT INFORMATION
  Report Type: 
  Country: None (occurrence: None)
  Receive Date: 20111007
  Receipt Date: 20111007
  Transmission Date: 20120403
  Serious: Yes (Other)
  Sender: FDA-Public Use
  Company Number: None

PATIENT
  Sex: Male
  Weight: 117.6 kg

DRUGS (1)
  1. ONDANSETRON [Suspect]
     Indication: LYMPHOMA
     Dosage: 8MG
     Route: 048
     Dates: start: 20110830, end: 20110831

REACTIONS (2)
  - MALAISE [None]
  - DRUG INTOLERANCE [None]
